FAERS Safety Report 7238138-6 (Version None)
Quarter: 2011Q1

REPORT INFORMATION
  Report Type: 
  Country: None (occurrence: None)
  Receive Date: 20110121
  Receipt Date: 20110112
  Transmission Date: 20110831
  Serious: Yes (Hospitalization)
  Sender: FDA-Public Use
  Company Number: IT-JNJFOC-20101108277

PATIENT
  Sex: Female

DRUGS (1)
  1. CONTRAMAL [Suspect]
     Indication: PRODUCT USED FOR UNKNOWN INDICATION
     Route: 065
     Dates: start: 20101013, end: 20101016

REACTIONS (4)
  - VOMITING [None]
  - MYALGIA [None]
  - MALAISE [None]
  - ABDOMINAL PAIN [None]
